FAERS Safety Report 11984755 (Version 2)
Quarter: 2017Q3

REPORT INFORMATION
  Report Type: Spontaneous
  Country: US (occurrence: US)
  Receive Date: 20160201
  Receipt Date: 20170731
  Transmission Date: 20171127
  Serious: Yes (Life-Threatening, Hospitalization)
  Sender: FDA-Public Use
  Company Number: US-VALIDUS PHARMACEUTICALS LLC-US-2016VAL000098

PATIENT
  Age: 15 Year
  Sex: Female

DRUGS (1)
  1. CARBAMAZEPINE. [Suspect]
     Active Substance: CARBAMAZEPINE
     Indication: PRODUCT USED FOR UNKNOWN INDICATION
     Dosage: 280 DF, SINGLE, EXTENDED-RELEASE TABLETS

REACTIONS (6)
  - Ileus [Recovered/Resolved]
  - Electrocardiogram QT prolonged [Recovered/Resolved]
  - Gastrointestinal sounds abnormal [Recovered/Resolved]
  - Overdose [Recovered/Resolved]
  - Nervous system disorder [Recovered/Resolved]
  - Plasma cell disorder [Recovered/Resolved]
